FAERS Safety Report 21063910 (Version 1)
Quarter: 2022Q3

REPORT INFORMATION
  Report Type: Spontaneous
  Country: US (occurrence: None)
  Receive Date: 20220710
  Receipt Date: 20220710
  Transmission Date: 20221026
  Serious: Yes (Other)
  Sender: FDA-Public Use
  Company Number: None

PATIENT
  Age: 74 Year
  Sex: Female
  Weight: 54.9 kg

DRUGS (5)
  1. PAXLOVID [Suspect]
     Active Substance: NIRMATRELVIR\RITONAVIR
     Indication: COVID-19
     Dosage: OTHER QUANTITY : 3 TABLET(S);?FREQUENCY : TWICE A DAY;?
     Route: 048
     Dates: start: 20220708, end: 20220708
  2. MAGNESIUM [Concomitant]
     Active Substance: MAGNESIUM
  3. NIACIN [Concomitant]
     Active Substance: NIACIN
  4. VITAMIN D [Concomitant]
     Active Substance: VITAMIN D NOS
  5. OCUVITE [Concomitant]
     Active Substance: VITAMINS

REACTIONS (3)
  - Cough [None]
  - Vomiting [None]
  - Dyspnoea [None]

NARRATIVE: CASE EVENT DATE: 20220708
